FAERS Safety Report 5427114-1 (Version None)
Quarter: 2007Q3

REPORT INFORMATION
  Report Type: 
  Country: None (occurrence: None)
  Receive Date: 20070824
  Receipt Date: 20070824
  Transmission Date: 20080115
  Serious: Yes (Disabling, Other)
  Sender: FDA-Public Use
  Company Number: None

PATIENT
  Sex: Male
  Weight: 104.3273 kg

DRUGS (1)
  1. LEVAQUIN [Suspect]
     Indication: NEPHROLITHIASIS
     Dosage: 1 ONCE DAILY PO
     Route: 048
     Dates: start: 20070813, end: 20070819

REACTIONS (7)
  - ABASIA [None]
  - ARTHRALGIA [None]
  - ASTHENIA [None]
  - MUSCULOSKELETAL PAIN [None]
  - PAIN [None]
  - PAIN IN EXTREMITY [None]
  - PAIN IN JAW [None]
